FAERS Safety Report 20175352 (Version 1)
Quarter: 2021Q4

REPORT INFORMATION
  Report Type: Report from Study
  Country: US (occurrence: US)
  Receive Date: 20211213
  Receipt Date: 20211213
  Transmission Date: 20220303
  Serious: Yes (Other)
  Sender: FDA-Public Use
  Company Number: US-TAKEDA-2016MPI006883

PATIENT
  Age: 68 Year
  Sex: Female
  Weight: 61 kg

DRUGS (11)
  1. SAPANISERTIB [Suspect]
     Active Substance: SAPANISERTIB
     Indication: Breast cancer metastatic
     Dosage: 1 MG, QD
     Route: 048
     Dates: start: 20160707
  2. SAPANISERTIB [Suspect]
     Active Substance: SAPANISERTIB
     Dosage: 3 MG, QD
     Route: 048
     Dates: start: 20160707
  3. EXEMESTANE [Suspect]
     Active Substance: EXEMESTANE
     Indication: Breast cancer metastatic
     Dosage: 25 MG, UNK
     Route: 048
     Dates: start: 20160707
  4. NORVASC [Suspect]
     Active Substance: AMLODIPINE BESYLATE
     Indication: Hypertension
     Dosage: 5 MG, UNK
     Route: 048
  5. ASPIRIN                            /00002701/ [Concomitant]
     Dosage: 81 MG, UNK
     Route: 048
  6. BENADRYL                           /00000402/ [Concomitant]
     Indication: Pruritus
     Route: 048
  7. NEURONTIN [Concomitant]
     Active Substance: GABAPENTIN
     Dosage: 100 MG, UNK
     Route: 048
  8. HYDROCHLOROTHIAZIDE [Concomitant]
     Active Substance: HYDROCHLOROTHIAZIDE
     Dosage: UNK
     Route: 048
  9. IRON [Concomitant]
     Active Substance: IRON
     Dosage: UNK
     Route: 048
  10. K-DUR [Concomitant]
     Active Substance: POTASSIUM CHLORIDE
     Dosage: 80 MEQ, UNK
     Route: 048
  11. AMBIEN [Concomitant]
     Active Substance: ZOLPIDEM TARTRATE
     Indication: Insomnia
     Dosage: 5 MG, UNK
     Route: 048

REACTIONS (1)
  - Syncope [Recovered/Resolved with Sequelae]

NARRATIVE: CASE EVENT DATE: 20160723
